FAERS Safety Report 19658050 (Version 3)
Quarter: 2021Q3

REPORT INFORMATION
  Report Type: Spontaneous
  Country: US (occurrence: US)
  Receive Date: 20210804
  Receipt Date: 20210811
  Transmission Date: 20211014
  Serious: Yes (Other)
  Sender: FDA-Public Use
  Company Number: US-PFIZER INC-2021493290

PATIENT
  Age: 70 Year
  Sex: Female

DRUGS (1)
  1. IBRANCE [Suspect]
     Active Substance: PALBOCICLIB
     Indication: BREAST CANCER FEMALE
     Dosage: 100 MG, CYCLIC (ONE TABLET (100MG) PO QD 21/28 DAYS)
     Route: 048
     Dates: start: 20190802

REACTIONS (6)
  - Red blood cell count decreased [Unknown]
  - Hot flush [Unknown]
  - Hypertension [Unknown]
  - Sleep disorder [Unknown]
  - White blood cell count decreased [Unknown]
  - Anxiety [Unknown]
